FAERS Safety Report 20394050 (Version 23)
Quarter: 2023Q4

REPORT INFORMATION
  Report Type: Spontaneous
  Country: CA (occurrence: CA)
  Receive Date: 20220129
  Receipt Date: 20231213
  Transmission Date: 20240109
  Serious: Yes (Hospitalization, Other)
  Sender: FDA-Public Use
  Company Number: CA-CELLTRION INC.-2022CA000929

PATIENT

DRUGS (34)
  1. INFLECTRA [Suspect]
     Active Substance: INFLIXIMAB-DYYB
     Indication: Crohn^s disease
     Dosage: EVERY 0, 2, 6 WEEKS THEN EVERY 8 WEEKS
     Route: 042
     Dates: start: 20211208
  2. INFLECTRA [Suspect]
     Active Substance: INFLIXIMAB-DYYB
     Dosage: EVERY 0, 2, 6 WEEKS THEN EVERY 8 WEEKS
     Route: 042
     Dates: start: 20211208
  3. INFLECTRA [Suspect]
     Active Substance: INFLIXIMAB-DYYB
     Dosage: EVERY 0, 2, 6 WEEKS THEN EVERY 8 WEEKS (INFUSION RECEIVED IN HOSPITAL)
     Route: 042
     Dates: start: 20211223
  4. INFLECTRA [Suspect]
     Active Substance: INFLIXIMAB-DYYB
     Dosage: EVERY 0, 2, 6 WEEKS THEN EVERY 8 WEEKS
     Route: 042
     Dates: start: 20220125
  5. INFLECTRA [Suspect]
     Active Substance: INFLIXIMAB-DYYB
     Dosage: EVERY 0, 2, 6 WEEKS THEN EVERY 8 WEEKS (INFUSION RECEIVED IN HOSPITAL)
     Route: 042
     Dates: start: 20220222
  6. INFLECTRA [Suspect]
     Active Substance: INFLIXIMAB-DYYB
     Dosage: EVERY 4 WEEKS
     Route: 042
     Dates: start: 20220315
  7. INFLECTRA [Suspect]
     Active Substance: INFLIXIMAB-DYYB
     Dosage: EVERY 4 WEEKS
     Route: 042
     Dates: start: 20220413
  8. INFLECTRA [Suspect]
     Active Substance: INFLIXIMAB-DYYB
     Dosage: EVERY 4 WEEKS
     Route: 042
     Dates: start: 20220511
  9. INFLECTRA [Suspect]
     Active Substance: INFLIXIMAB-DYYB
     Dosage: EVERY 4 WEEKS
     Route: 042
     Dates: start: 20220608
  10. INFLECTRA [Suspect]
     Active Substance: INFLIXIMAB-DYYB
     Dosage: EVERY 4 WEEKS
     Route: 042
     Dates: start: 20220706
  11. INFLECTRA [Suspect]
     Active Substance: INFLIXIMAB-DYYB
     Dosage: EVERY 4 WEEKS
     Route: 042
     Dates: start: 20220803
  12. INFLECTRA [Suspect]
     Active Substance: INFLIXIMAB-DYYB
     Dosage: EVERY 4 WEEKS
     Route: 042
     Dates: start: 20220906
  13. INFLECTRA [Suspect]
     Active Substance: INFLIXIMAB-DYYB
     Dosage: EVERY 4 WEEKS
     Route: 042
     Dates: start: 20221005
  14. INFLECTRA [Suspect]
     Active Substance: INFLIXIMAB-DYYB
     Dosage: EVERY 4 WEEKS
     Route: 042
     Dates: start: 20221102
  15. INFLECTRA [Suspect]
     Active Substance: INFLIXIMAB-DYYB
     Dosage: EVERY 4 WEEKS
     Route: 042
     Dates: start: 20221128
  16. INFLECTRA [Suspect]
     Active Substance: INFLIXIMAB-DYYB
     Dosage: EVERY 4 WEEKS
     Route: 042
     Dates: start: 20230220
  17. INFLECTRA [Suspect]
     Active Substance: INFLIXIMAB-DYYB
     Dosage: EVERY 4 WEEKS
     Route: 042
     Dates: start: 20230320
  18. INFLECTRA [Suspect]
     Active Substance: INFLIXIMAB-DYYB
     Dosage: EVERY 4 WEEKS
     Route: 042
     Dates: start: 20230417
  19. INFLECTRA [Suspect]
     Active Substance: INFLIXIMAB-DYYB
     Dosage: EVERY 4 WEEKS
     Route: 042
     Dates: start: 20230515
  20. INFLECTRA [Suspect]
     Active Substance: INFLIXIMAB-DYYB
     Dosage: EVERY 4 WEEKS
     Route: 042
     Dates: start: 20230612
  21. INFLECTRA [Suspect]
     Active Substance: INFLIXIMAB-DYYB
     Dosage: EVERY 4 WEEKS
     Route: 042
     Dates: start: 20230710
  22. INFLECTRA [Suspect]
     Active Substance: INFLIXIMAB-DYYB
     Dosage: EVERY 4 WEEKS
     Route: 042
     Dates: start: 20230810
  23. INFLECTRA [Suspect]
     Active Substance: INFLIXIMAB-DYYB
     Dosage: EVERY 4 WEEKS
     Route: 042
     Dates: start: 20230907
  24. INFLECTRA [Suspect]
     Active Substance: INFLIXIMAB-DYYB
     Dosage: EVERY 4 WEEKS
     Route: 042
     Dates: start: 20231005
  25. INFLECTRA [Suspect]
     Active Substance: INFLIXIMAB-DYYB
     Dosage: EVERY 4 WEEKS
     Route: 042
     Dates: start: 20231102
  26. INFLECTRA [Suspect]
     Active Substance: INFLIXIMAB-DYYB
     Dosage: EVERY 4 WEEKS (AFTER 3 WEEKS AND 6 DAYS)
     Route: 042
     Dates: start: 20231129
  27. GRAVOL [Concomitant]
     Active Substance: DIMENHYDRINATE
     Dosage: 50 MG
     Route: 054
  28. INDAPAMIDE [Concomitant]
     Active Substance: INDAPAMIDE
     Dosage: 1 DF, DOSAGE NOT AVAILABLE
     Route: 065
  29. INSULIN NOS [Concomitant]
     Active Substance: INSULIN NOS
     Dosage: 1 DF, DOSAGE NOT AVAILABLE
     Route: 065
  30. PANTOPRAZOLE SODIUM [Concomitant]
     Active Substance: PANTOPRAZOLE SODIUM
     Dosage: 40 MG
     Route: 048
  31. PREDNISONE [Concomitant]
     Active Substance: PREDNISONE
     Dosage: 1 DF, DOSAGE NOT AVAILABLE
     Route: 065
  32. PURINETHOL [Concomitant]
     Active Substance: MERCAPTOPURINE
     Dosage: 1 DF
  33. PURINETHOL [Concomitant]
     Active Substance: MERCAPTOPURINE
     Dosage: 100 MG
     Route: 048
  34. VENLAFAXINE [Concomitant]
     Active Substance: VENLAFAXINE HYDROCHLORIDE
     Dosage: 1 DF, DOSAGE NOT AVAILABLE
     Route: 065

REACTIONS (19)
  - Loss of consciousness [Unknown]
  - Fall [Unknown]
  - Fractured coccyx [Unknown]
  - Vomiting [Recovered/Resolved]
  - Hepatic cirrhosis [Not Recovered/Not Resolved]
  - Condition aggravated [Recovering/Resolving]
  - Therapeutic response shortened [Unknown]
  - Drug level decreased [Unknown]
  - Off label use [Unknown]
  - Weight increased [Not Recovered/Not Resolved]
  - Inappropriate schedule of product administration [Unknown]
  - COVID-19 [Unknown]
  - Nausea [Not Recovered/Not Resolved]
  - Appetite disorder [Recovered/Resolved]
  - Increased appetite [Not Recovered/Not Resolved]
  - Anal incontinence [Not Recovered/Not Resolved]
  - Abdominal distension [Not Recovered/Not Resolved]
  - Radial pulse increased [Not Recovered/Not Resolved]
  - Tachycardia [Not Recovered/Not Resolved]

NARRATIVE: CASE EVENT DATE: 20211201
